FAERS Safety Report 22033936 (Version 1)
Quarter: 2023Q1

REPORT INFORMATION
  Report Type: Spontaneous
  Country: US (occurrence: None)
  Receive Date: 20230222
  Receipt Date: 20230222
  Transmission Date: 20230417
  Serious: Yes (Other)
  Sender: FDA-Public Use
  Company Number: None

PATIENT
  Age: 32 Year
  Sex: Female

DRUGS (1)
  1. REBIF [Suspect]
     Active Substance: INTERFERON BETA-1A
     Indication: Multiple sclerosis
     Dosage: 44MCG  OTHER SUBCUTANEOUS????THERAPY START DATE: DEC,2023
     Route: 058

REACTIONS (2)
  - Multiple sclerosis [None]
  - Multiple sclerosis [None]

NARRATIVE: CASE EVENT DATE: 20221222
